FAERS Safety Report 18774863 (Version 2)
Quarter: 2022Q1

REPORT INFORMATION
  Report Type: Spontaneous
  Country: CA (occurrence: CA)
  Receive Date: 20210122
  Receipt Date: 20220209
  Transmission Date: 20220423
  Serious: Yes (Other)
  Sender: FDA-Public Use
  Company Number: CA-PURDUE-USA-2020-0197037

PATIENT
  Sex: Male

DRUGS (11)
  1. OXYCONTIN [Suspect]
     Active Substance: OXYCODONE HYDROCHLORIDE
     Indication: Product used for unknown indication
     Dosage: 80 MG, TID
     Route: 048
     Dates: start: 2000
  2. OXYCONTIN [Suspect]
     Active Substance: OXYCODONE HYDROCHLORIDE
     Dosage: 40 MG, BID
     Route: 048
  3. OXYCODONE HYDROCHLORIDE [Suspect]
     Active Substance: OXYCODONE HYDROCHLORIDE
     Indication: Product used for unknown indication
     Dosage: 40 MG, BID
     Route: 048
  4. OXYCODONE HYDROCHLORIDE [Suspect]
     Active Substance: OXYCODONE HYDROCHLORIDE
     Dosage: 80 MG, UNK
     Route: 048
  5. OXYCODONE HYDROCHLORIDE [Suspect]
     Active Substance: OXYCODONE HYDROCHLORIDE
     Indication: Product used for unknown indication
     Dosage: UNK, UNK
     Route: 048
  6. OXYCODONE HYDROCHLORIDE [Suspect]
     Active Substance: OXYCODONE HYDROCHLORIDE
     Indication: Product used for unknown indication
     Dosage: UNK, UNK
     Route: 048
  7. ACETAMINOPHEN\OXYCODONE HYDROCHLORIDE [Suspect]
     Active Substance: ACETAMINOPHEN\OXYCODONE HYDROCHLORIDE
     Indication: Product used for unknown indication
     Dosage: UNK, UNK
     Route: 048
  8. LYRICA [Suspect]
     Active Substance: PREGABALIN
     Indication: Product used for unknown indication
     Dosage: 75 MG, UNK
     Route: 065
  9. LYRICA [Suspect]
     Active Substance: PREGABALIN
     Dosage: 225 UNK, UNK
     Route: 065
  10. LYRICA [Suspect]
     Active Substance: PREGABALIN
     Dosage: 100 UNK, UNK
     Route: 065
  11. LYRICA [Suspect]
     Active Substance: PREGABALIN
     Dosage: 225 UNK, UNK
     Route: 065

REACTIONS (7)
  - Disability [Unknown]
  - Major depression [Unknown]
  - Drug dependence [Unknown]
  - Mental disorder [Unknown]
  - General physical health deterioration [Unknown]
  - Impaired work ability [Unknown]
  - Upper respiratory tract infection [Unknown]
